FAERS Safety Report 20492594 (Version 1)
Quarter: 2022Q1

REPORT INFORMATION
  Report Type: Spontaneous
  Country: DE (occurrence: DE)
  Receive Date: 20220219
  Receipt Date: 20220219
  Transmission Date: 20220424
  Serious: Yes (Other)
  Sender: FDA-Public Use
  Company Number: DE-AUROBINDO-AUR-APL-2018-042911

PATIENT
  Age: 74 Year
  Sex: Male
  Weight: 81 kg

DRUGS (11)
  1. TAMSULOSIN [Suspect]
     Active Substance: TAMSULOSIN
     Indication: Benign prostatic hyperplasia
     Dosage: UNK
     Route: 065
  2. REMIFENTANIL [Suspect]
     Active Substance: REMIFENTANIL
     Indication: Product used for unknown indication
     Dosage: 0.35 MICROGRAM/KILOGRAM
     Route: 065
  3. REMIFENTANIL [Suspect]
     Active Substance: REMIFENTANIL
     Dosage: 0.15 MICROGRAM/KILOGRAM
     Route: 050
  4. ROCURONIUM [Interacting]
     Active Substance: ROCURONIUM BROMIDE
     Indication: Neuromuscular blocking therapy
     Dosage: 50 MILLIGRAM
     Route: 042
  5. EPINEPHRINE [Interacting]
     Active Substance: EPINEPHRINE
     Indication: Blood pressure decreased
     Dosage: 5 MICROGRAM(THREE BOLUSES WERE GIVEN)
     Route: 040
  6. EPINEPHRINE [Interacting]
     Active Substance: EPINEPHRINE
     Indication: Heart rate decreased
  7. ATROPINE [Suspect]
     Active Substance: ATROPINE
     Indication: Heart rate decreased
     Dosage: UNK
     Route: 065
  8. ATROPINE [Suspect]
     Active Substance: ATROPINE
     Indication: Blood pressure decreased
     Dosage: IN TOTAL
     Route: 065
  9. CLORAZEPATE DIPOTASSIUM [Concomitant]
     Active Substance: CLORAZEPATE DIPOTASSIUM
     Indication: Premedication
     Dosage: 20 MILLIGRAM
     Route: 048
  10. FENTANYL [Concomitant]
     Active Substance: FENTANYL
     Indication: Anaesthesia
     Dosage: 0.2 MICROGRAM/KILOGRAM
     Route: 042
  11. PROPOFOL [Concomitant]
     Active Substance: PROPOFOL
     Indication: Anaesthesia
     Dosage: 1.5 MILLIGRAM/KILOGRAM
     Route: 041

REACTIONS (5)
  - Hypotension [Recovering/Resolving]
  - Bradycardia [Recovered/Resolved]
  - Neuromuscular block prolonged [Recovered/Resolved]
  - Drug ineffective [Unknown]
  - Drug interaction [Recovered/Resolved]
